FAERS Safety Report 9642485 (Version 1)
Quarter: 2013Q4

REPORT INFORMATION
  Report Type: Report from Study
  Country: US (occurrence: US)
  Receive Date: 20131024
  Receipt Date: 20131024
  Transmission Date: 20140711
  Serious: Yes (Hospitalization, Other)
  Sender: FDA-Public Use
  Company Number: US-ROCHE-1292666

PATIENT
  Age: 82 Year
  Sex: Female
  Weight: 71.28 kg

DRUGS (2)
  1. RITUXAN [Suspect]
     Indication: MICROSCOPIC POLYANGIITIS
     Route: 042
     Dates: start: 20131010
  2. PREDNISONE [Concomitant]
     Indication: MICROSCOPIC POLYANGIITIS
     Route: 048

REACTIONS (3)
  - Faeces discoloured [Recovering/Resolving]
  - Haematochezia [Recovering/Resolving]
  - International normalised ratio increased [Unknown]
